FAERS Safety Report 8803587 (Version 1)
Quarter: 2012Q4

REPORT INFORMATION
  Report Type: 
  Country: BG (occurrence: BG)
  Receive Date: 20120924
  Receipt Date: 20120924
  Transmission Date: 20130627
  Serious: Yes (Other)
  Sender: FDA-Public Use
  Company Number: BG-AMGEN-BGRSP2012059258

PATIENT
  Age: 71 Year
  Sex: Female

DRUGS (5)
  1. ENBREL [Suspect]
     Indication: PSORIASIS
     Dosage: 50 mg, weekly
     Dates: start: 201206, end: 20120913
  2. METHOTREXATE [Concomitant]
     Indication: PSORIASIS
     Dosage: 20 mg, weekly
  3. METHOTREXATE [Concomitant]
     Dosage: 10 mg, weekly
  4. MEDROL                             /00049601/ [Concomitant]
     Indication: PSORIASIS
     Dosage: 4 mg, 1x/day
     Dates: start: 2010
  5. MELBEK [Concomitant]
     Indication: PSORIASIS
     Dosage: UNK

REACTIONS (4)
  - Swelling face [Recovered/Resolved]
  - Lip swelling [Recovered/Resolved]
  - Eyelid oedema [Recovered/Resolved]
  - Rash erythematous [Recovered/Resolved]
